FAERS Safety Report 20156825 (Version 1)
Quarter: 2021Q4

REPORT INFORMATION
  Report Type: Spontaneous
  Country: US (occurrence: None)
  Receive Date: 20211207
  Receipt Date: 20211207
  Transmission Date: 20220303
  Serious: Yes (Other)
  Sender: FDA-Public Use
  Company Number: 2021A857426

PATIENT

DRUGS (38)
  1. NEXIUM [Suspect]
     Active Substance: ESOMEPRAZOLE MAGNESIUM
     Indication: Product used for unknown indication
     Route: 048
     Dates: start: 200401, end: 201712
  2. NEXIUM 24HR [Suspect]
     Active Substance: ESOMEPRAZOLE MAGNESIUM
     Indication: Gastrooesophageal reflux disease
     Route: 048
     Dates: start: 201512, end: 201602
  3. PRILOSEC [Suspect]
     Active Substance: OMEPRAZOLE MAGNESIUM
     Indication: Product used for unknown indication
     Route: 048
     Dates: start: 200401, end: 201712
  4. OMEPRAZOLE [Suspect]
     Active Substance: OMEPRAZOLE
     Indication: Gastrooesophageal reflux disease
     Dosage: GENERIC
     Route: 065
     Dates: start: 20171018, end: 20180118
  5. PRILOSEC OTC [Suspect]
     Active Substance: OMEPRAZOLE MAGNESIUM
     Indication: Gastrooesophageal reflux disease
     Route: 048
     Dates: start: 201402, end: 201701
  6. DEXILANT [Suspect]
     Active Substance: DEXLANSOPRAZOLE
     Indication: Product used for unknown indication
     Route: 065
     Dates: start: 200401, end: 201712
  7. PREVACID [Suspect]
     Active Substance: LANSOPRAZOLE
     Indication: Product used for unknown indication
     Route: 065
     Dates: start: 200401, end: 201712
  8. PREVACID 24 HR [Suspect]
     Active Substance: LANSOPRAZOLE
     Indication: Product used for unknown indication
     Route: 065
     Dates: start: 200401, end: 201712
  9. PROTONIX [Suspect]
     Active Substance: PANTOPRAZOLE SODIUM
     Indication: Product used for unknown indication
     Route: 065
     Dates: start: 200401, end: 201712
  10. PANTOPRAZOLE [Suspect]
     Active Substance: PANTOPRAZOLE
     Indication: Gastrooesophageal reflux disease
     Dosage: GENERIC
     Route: 065
     Dates: start: 20171024, end: 20180214
  11. AMLODIPINE [Concomitant]
     Active Substance: AMLODIPINE BESYLATE
     Indication: Product used for unknown indication
     Dosage: UNK
  12. CEPHALEXIN [Concomitant]
     Active Substance: CEPHALEXIN
     Indication: Antibiotic therapy
     Dosage: UNK
     Dates: start: 20130411, end: 20171218
  13. CARVEDILOL [Concomitant]
     Active Substance: CARVEDILOL
     Indication: Product used for unknown indication
     Dosage: UNK
  14. LISINOPRIL [Concomitant]
     Active Substance: LISINOPRIL
     Indication: Product used for unknown indication
     Dosage: UNK
  15. ONDANSETRON [Concomitant]
     Active Substance: ONDANSETRON
     Indication: Product used for unknown indication
     Dosage: UNK
  16. FAMOTIDINE [Concomitant]
     Active Substance: FAMOTIDINE
     Indication: Product used for unknown indication
     Dosage: UNK
  17. TRAMADOL [Concomitant]
     Active Substance: TRAMADOL
     Indication: Analgesic therapy
     Dosage: UNK
  18. SULFASALAZINE [Concomitant]
     Active Substance: SULFASALAZINE
     Indication: Colitis ulcerative
     Dosage: UNK
     Dates: start: 201710
  19. TEMAZEPAM [Concomitant]
     Active Substance: TEMAZEPAM
     Indication: Sleep disorder
     Dosage: UNK
     Dates: start: 20080603
  20. LEXAPRO [Concomitant]
     Active Substance: ESCITALOPRAM OXALATE
     Indication: Antidepressant therapy
     Dosage: UNK
     Dates: start: 20090109, end: 20090210
  21. CITALOPRAM [Concomitant]
     Active Substance: CITALOPRAM HYDROBROMIDE
     Indication: Antidepressant therapy
     Dosage: UNK
     Dates: start: 20090313, end: 20090917
  22. CLOBETASOL [Concomitant]
     Active Substance: CLOBETASOL
     Indication: Inflammation
     Dosage: UNK
     Dates: start: 20080722, end: 20100524
  23. CLOBETASOL [Concomitant]
     Active Substance: CLOBETASOL
     Indication: Pruritus
     Dosage: UNK
     Dates: start: 20080722, end: 20100524
  24. OXYBUTYNIN [Concomitant]
     Active Substance: OXYBUTYNIN
     Indication: Hypertonic bladder
     Dosage: UNK
     Dates: start: 201612, end: 201708
  25. ROPINIROLE [Concomitant]
     Active Substance: ROPINIROLE
     Indication: Tremor
     Dosage: UNK
     Dates: start: 2015, end: 2017
  26. AZITHROMYCIN [Concomitant]
     Active Substance: AZITHROMYCIN
     Indication: Antibiotic prophylaxis
     Dosage: UNK
     Dates: start: 20161222
  27. VITAMIN D2 [Concomitant]
     Active Substance: ERGOCALCIFEROL
     Indication: Hypovitaminosis
     Dosage: UNK
     Dates: start: 20160907
  28. XIFAXAN [Concomitant]
     Active Substance: RIFAXIMIN
     Indication: Antibiotic therapy
     Dosage: UNK
     Dates: start: 20160907
  29. ARIPIPRAZOLE [Concomitant]
     Active Substance: ARIPIPRAZOLE
     Indication: Antidepressant therapy
     Dosage: UNK
     Dates: start: 20160907
  30. SIMVASTATIN [Concomitant]
     Active Substance: SIMVASTATIN
     Indication: Blood cholesterol decreased
     Dosage: UNK
     Dates: start: 201509, end: 201512
  31. NITROFURANTOIN [Concomitant]
     Active Substance: NITROFURANTOIN
     Indication: Antibiotic therapy
     Dosage: UNK
     Dates: start: 20160509
  32. BIOTIN [Concomitant]
     Active Substance: BIOTIN
     Indication: Nutritional supplementation
     Dosage: UNK
     Dates: start: 201505, end: 201509
  33. CARISOPRODOL [Concomitant]
     Active Substance: CARISOPRODOL
     Indication: Myalgia
     Dosage: UNK
     Dates: start: 201308, end: 201406
  34. MELATONIN [Concomitant]
     Active Substance: MELATONIN
     Indication: Sleep disorder
     Dosage: UNK
     Dates: start: 2015
  35. ALEVE [Concomitant]
     Active Substance: NAPROXEN SODIUM
     Indication: Pain
     Dosage: UNK
     Dates: start: 2012, end: 2016
  36. ZANTAC [Concomitant]
     Active Substance: RANITIDINE HYDROCHLORIDE
     Indication: Product used for unknown indication
     Dosage: UNK
     Dates: start: 2014, end: 2016
  37. TUMS [Concomitant]
     Active Substance: CALCIUM CARBONATE
     Indication: Product used for unknown indication
     Dosage: UNK, QD
     Dates: start: 2013, end: 2015
  38. ATORVASTATIN [Concomitant]
     Active Substance: ATORVASTATIN
     Dosage: UNK
     Dates: start: 20161222

REACTIONS (3)
  - Chronic kidney disease [Unknown]
  - Renal failure [Unknown]
  - Essential hypertension [Unknown]

NARRATIVE: CASE EVENT DATE: 20161222
